FAERS Safety Report 7994703-X (Version None)
Quarter: 2011Q4

REPORT INFORMATION
  Report Type: 
  Country: None (occurrence: None)
  Receive Date: 20111220
  Receipt Date: 20111209
  Transmission Date: 20120403
  Serious: Yes (Hospitalization, Other)
  Sender: FDA-Public Use
  Company Number: PHHY2011DE108824

PATIENT
  Sex: Male
  Weight: 55 kg

DRUGS (8)
  1. OMEPRAZOLE [Concomitant]
     Dosage: UNK UKN, UNK
  2. CARBOPLATIN [Suspect]
     Indication: LUNG NEOPLASM MALIGNANT
     Dosage: 450 MG, DAILY
     Route: 042
     Dates: start: 20111011
  3. CARBOPLATIN [Suspect]
     Dosage: 248 MG/M2, UNK
     Route: 042
     Dates: start: 20111102
  4. ALIMTA [Suspect]
     Dosage: 500 MG/M2, UNK
     Route: 042
     Dates: start: 20111102
  5. FOLSAN [Concomitant]
     Indication: LUNG NEOPLASM MALIGNANT
     Dosage: 0.8 MG, UNK
     Route: 048
     Dates: start: 20111004
  6. ALIMTA [Suspect]
     Indication: LUNG NEOPLASM MALIGNANT
     Dosage: 792 MG, DAILY
     Route: 042
     Dates: start: 20111011
  7. GRANISETRON [Concomitant]
     Dosage: UNK UKN, UNK
     Route: 048
     Dates: start: 20111004
  8. ZOMETA [Suspect]
     Indication: BONE DISORDER
     Dosage: UNK UKN, UNK
     Route: 042
     Dates: start: 20110830

REACTIONS (3)
  - ORAL CANDIDIASIS [None]
  - FATIGUE [None]
  - GENERAL PHYSICAL HEALTH DETERIORATION [None]
